FAERS Safety Report 10177616 (Version 2)
Quarter: 2014Q2

REPORT INFORMATION
  Report Type: Spontaneous
  Country: BR (occurrence: BR)
  Receive Date: 20140516
  Receipt Date: 20140523
  Transmission Date: 20141212
  Serious: Yes (Other)
  Sender: FDA-Public Use
  Company Number: BR-PFIZER INC-2014131570

PATIENT
  Age: 79 Year
  Sex: Male

DRUGS (1)
  1. CAVERJECT [Suspect]
     Dosage: AT WEAKEST DOSAGE (UNSPECIFIED) EVERY WEEK
     Dates: start: 2006

REACTIONS (3)
  - Intentional product misuse [Unknown]
  - Syncope [Unknown]
  - Vomiting [Unknown]
